FAERS Safety Report 5705508-4 (Version None)
Quarter: 2008Q2

REPORT INFORMATION
  Report Type: 
  Country: None (occurrence: None)
  Receive Date: 20080411
  Receipt Date: 20080402
  Transmission Date: 20081010
  Serious: Yes (Death)
  Sender: FDA-Public Use
  Company Number: 000441

PATIENT
  Age: 76 Year
  Sex: Male
  Weight: 55 kg

DRUGS (11)
  1. PLETAL [Suspect]
     Indication: ARTERIOSCLEROSIS OBLITERANS
     Dosage: 50 MG, TID ORAL
     Route: 048
     Dates: start: 20070511, end: 20080229
  2. MUCOSTA (REBAMIPIDE) TABLET [Concomitant]
  3. RYTHMODAN R (DISOPYRAMIDE PHOSPHATE) TABLET [Concomitant]
  4. BUFFERIN (ASPIRIN-DIALUMINATE) TABLET [Concomitant]
  5. ALFAROL (ALFACALCIDOL) CAPSULE [Concomitant]
  6. DORNER (BERAPROST SODIUM) TABLET [Concomitant]
  7. CALBLOCK (AZELNIDIPINE) TABLET [Concomitant]
  8. BLOPRESS (CANDESARTAN CILEXETIL) TABLET [Concomitant]
  9. ARGAMATE (CALCIUM POLYSTYRENE SULFONATE) JELLY [Concomitant]
  10. ALLEGRA (FEXOFENADINE HYDROCHLORIDE) TABLET [Concomitant]
  11. NIPOLAZIN (MEQUITAZINE) TABLET [Concomitant]

REACTIONS (4)
  - ACUTE MYOCARDIAL INFARCTION [None]
  - CARDIAC FAILURE ACUTE [None]
  - REFUSAL OF TREATMENT BY PATIENT [None]
  - REFUSAL OF TREATMENT BY RELATIVE [None]
